FAERS Safety Report 7595657 (Version 3)
Quarter: 2012Q4

REPORT INFORMATION
  Report Type: 
  Country: US (occurrence: US)
  Receive Date: 20100920
  Receipt Date: 20121119
  Transmission Date: 20130627
  Serious: No
  Sender: FDA-Public Use
  Company Number: US-ASTRAZENECA-2010SE19294

PATIENT
  Age: 65 Year
  Sex: Female
  Weight: 59 kg

DRUGS (9)
  1. ATACAND [Suspect]
     Route: 048
  2. NEXIUM [Suspect]
     Route: 048
  3. TOPROL XL [Suspect]
     Route: 048
  4. SEROQUEL [Suspect]
     Dosage: daily
     Route: 048
     Dates: start: 201001
  5. CRESTOR [Suspect]
     Route: 048
  6. LISINOPRIL [Concomitant]
  7. OMEPRAZOLE [Concomitant]
  8. PREVASTATIN [Concomitant]
  9. ECOTRIN [Concomitant]

REACTIONS (5)
  - Confusional state [Unknown]
  - Confusional state [Unknown]
  - Hypersomnia [Unknown]
  - Memory impairment [Unknown]
  - Upper limb fracture [Unknown]
